FAERS Safety Report 26207593 (Version 1)
Quarter: 2025Q4

REPORT INFORMATION
  Report Type: Spontaneous
  Country: AU (occurrence: AU)
  Receive Date: 20251229
  Receipt Date: 20251229
  Transmission Date: 20260117
  Serious: Yes (Life-Threatening, Hospitalization)
  Sender: MYLAN
  Company Number: AU-MYLANLABS-2025M1109064

PATIENT
  Age: 41 Year
  Sex: Female

DRUGS (2)
  1. VERAPAMIL [Suspect]
     Active Substance: VERAPAMIL HYDROCHLORIDE
     Indication: Ventricular tachycardia
     Dosage: 10.8 GRAM, INGESTING SLOW-RELEASE VERAPAMIL
     Route: 061
  2. FLECAINIDE [Suspect]
     Active Substance: FLECAINIDE
     Indication: Ventricular tachycardia
     Dosage: 2 GRAM, INGESTING FLECAINIDE
     Route: 061

REACTIONS (11)
  - Toxicity to various agents [Recovered/Resolved]
  - Cardiotoxicity [Recovered/Resolved]
  - Electrocardiogram QRS complex prolonged [Recovered/Resolved]
  - Cardiac hypertrophy [Recovered/Resolved]
  - Cardiogenic shock [Recovered/Resolved]
  - Vasoplegia syndrome [Recovered/Resolved]
  - Shock [Recovered/Resolved]
  - Atrioventricular block complete [Recovered/Resolved]
  - Overdose [Recovered/Resolved]
  - Metabolic acidosis [Recovered/Resolved]
  - Acute kidney injury [Recovered/Resolved]
